FAERS Safety Report 5089017-4 (Version None)
Quarter: 2006Q3

REPORT INFORMATION
  Report Type: 
  Country: None (occurrence: None)
  Receive Date: 20060825
  Receipt Date: 20060522
  Transmission Date: 20061208
  Serious: Yes (Other)
  Sender: FDA-Public Use
  Company Number: 2006AP02291

PATIENT
  Age: 60 Year

DRUGS (1)
  1. IRESSA [Suspect]
     Route: 048
     Dates: start: 20060101

REACTIONS (1)
  - OPERATIVE HAEMORRHAGE [None]
